FAERS Safety Report 4710816-X (Version None)
Quarter: 2005Q3

REPORT INFORMATION
  Report Type: 
  Country: None (occurrence: None)
  Receive Date: 20050708
  Receipt Date: 20050629
  Transmission Date: 20060218
  Serious: Yes (Hospitalization, Other)
  Sender: FDA-Public Use
  Company Number: 05-06-1140

PATIENT
  Age: 76 Year
  Sex: Female

DRUGS (11)
  1. VERAPAMIL [Suspect]
     Indication: HYPERTENSION
     Dosage: SR 180MG QD ORAL
     Route: 048
  2. TELITHROMYCIN [Suspect]
     Indication: SINUSITIS
     Dosage: 800MG QD ORAL
     Route: 048
  3. ESOMEPRAZOLE [Concomitant]
  4. TELMISARTAN [Concomitant]
  5. FUROSEMIDE [Concomitant]
  6. MONTELUKAST [Concomitant]
  7. OXAPROZIN [Concomitant]
  8. FLUTICASONE PROPIONATE [Concomitant]
  9. ALBUTEROL [Concomitant]
  10. IPRATROPIUM BROMIDE [Concomitant]
  11. BUDESONIDE [Concomitant]

REACTIONS (8)
  - ASTHENIA [None]
  - BRADYCARDIA [None]
  - CONFUSIONAL STATE [None]
  - DYSPNOEA [None]
  - HYPOTENSION [None]
  - LETHARGY [None]
  - NODAL ARRHYTHMIA [None]
  - NODAL RHYTHM [None]
